FAERS Safety Report 25260192 (Version 1)
Quarter: 2025Q2

REPORT INFORMATION
  Report Type: Spontaneous
  Country: BR (occurrence: BR)
  Receive Date: 20250501
  Receipt Date: 20250501
  Transmission Date: 20250717
  Serious: Yes (Death)
  Sender: BAYER HEALTHCARE PHARMACEUTICALS INC.
  Company Number: BR-BAYER-2025A059316

PATIENT
  Age: 51 Year
  Sex: Female

DRUGS (1)
  1. NEXAVAR [Suspect]
     Active Substance: SORAFENIB
     Indication: Hepatic cancer
     Dosage: 4 TABLETS A DAY
     Dates: start: 2013

REACTIONS (2)
  - Hepatic cancer [Fatal]
  - Urticaria [None]
